FAERS Safety Report 23314733 (Version 3)
Quarter: 2024Q1

REPORT INFORMATION
  Report Type: Spontaneous
  Country: US (occurrence: US)
  Receive Date: 20231219
  Receipt Date: 20240308
  Transmission Date: 20240410
  Serious: No
  Sender: FDA-Public Use
  Company Number: US-PFIZER INC-202300429344

PATIENT
  Age: 12 Year
  Sex: Male

DRUGS (2)
  1. GENOTROPIN [Suspect]
     Active Substance: SOMATROPIN
     Dosage: 1.0 MG, ALTERNATE DAY (1.0MG ALTERNATE WITH 1.2MG, 7 DAYS A WEEK)
  2. GENOTROPIN [Suspect]
     Active Substance: SOMATROPIN
     Dosage: 1.2 MG, ALTERNATE DAY (1.0MG ALTERNATE WITH 1.2MG, 7 DAYS A WEEK)

REACTIONS (3)
  - Device use issue [Unknown]
  - Device breakage [Unknown]
  - Device mechanical issue [Unknown]
